FAERS Safety Report 7803179-4 (Version None)
Quarter: 2011Q4

REPORT INFORMATION
  Report Type: 
  Country: None (occurrence: None)
  Receive Date: 20111007
  Receipt Date: 20111005
  Transmission Date: 20120403
  Serious: Yes (Hospitalization, Other)
  Sender: FDA-Public Use
  Company Number: PHHY2010NL47125

PATIENT
  Sex: Male

DRUGS (22)
  1. ZOMETA [Suspect]
     Dates: start: 20100618
  2. ZOLADEX [Concomitant]
     Dosage: ONCE PER THREE MONTHS
  3. ZOMETA [Suspect]
     Dosage: 4 MG / 5 ML PER 28 DAYSUNK
     Dates: start: 20101202
  4. ZOMETA [Suspect]
     Dates: start: 20110917
  5. ZOMETA [Suspect]
     Dosage: 4 MG, / 5 ML PER 28 DAYS
     Dates: start: 20110615
  6. ZOMETA [Suspect]
     Dates: start: 20110712
  7. ZOMETA [Suspect]
     Dates: start: 20110810
  8. ZOMETA [Suspect]
     Route: 042
     Dates: start: 20100909
  9. ZOMETA [Suspect]
     Dates: start: 20101104
  10. ZOMETA [Suspect]
     Dosage: 4 MG / 5 ML PER 28 DAYSUNK
     Dates: start: 20110324
  11. ZOMETA [Suspect]
     Dosage: 4 MG/ 5ML  20 MIN.
     Route: 042
     Dates: start: 20100325
  12. ZOMETA [Suspect]
     Route: 042
     Dates: start: 20100521
  13. ZOMETA [Suspect]
     Route: 042
     Dates: start: 20100716
  14. ZOMETA [Suspect]
     Dates: start: 20100812
  15. ZOMETA [Suspect]
     Dosage: 4 MG, / 5 ML PER 28 DAYS
     Dates: start: 20110518
  16. SINTROM [Concomitant]
  17. ZOMETA [Suspect]
     Route: 042
     Dates: start: 20100422
  18. ZOMETA [Suspect]
     Dosage: 4 MG / 5 ML PER 28 DAYSUNK
     Dates: start: 20110420
  19. ZOMETA [Suspect]
     Indication: PROSTATE CANCER METASTATIC
     Route: 042
     Dates: start: 20100224
  20. ZOMETA [Suspect]
     Route: 042
     Dates: start: 20101008
  21. ZOMETA [Suspect]
     Route: 042
     Dates: start: 20110127
  22. ZOMETA [Suspect]
     Dosage: 4 MG / 5 ML PER 28 DAYSUNK
     Dates: start: 20110224

REACTIONS (13)
  - ANAEMIA [None]
  - HAEMATOMA [None]
  - DYSURIA [None]
  - HAEMOGLOBIN DECREASED [None]
  - TERMINAL STATE [None]
  - LOWER LIMB FRACTURE [None]
  - PALLOR [None]
  - MALAISE [None]
  - FATIGUE [None]
  - FALL [None]
  - PAIN [None]
  - DIZZINESS [None]
  - CONTUSION [None]
